FAERS Safety Report 7515125-1 (Version None)
Quarter: 2011Q2

REPORT INFORMATION
  Report Type: 
  Country: None (occurrence: None)
  Receive Date: 20110601
  Receipt Date: 20110518
  Transmission Date: 20111010
  Serious: Yes (Other)
  Sender: FDA-Public Use
  Company Number: PHHY2011US26092

PATIENT
  Sex: Male

DRUGS (5)
  1. HYDROCHLOROTHIAZIDE [Concomitant]
  2. FUROSEMIDE [Concomitant]
  3. GLEEVEC [Suspect]
     Indication: CHRONIC MYELOID LEUKAEMIA
     Dosage: 400 MG, QD
     Route: 048
     Dates: start: 20091201
  4. ATACAND [Concomitant]
  5. ASPIRIN [Concomitant]

REACTIONS (3)
  - RENAL DISORDER [None]
  - FLUID RETENTION [None]
  - DIARRHOEA [None]
